FAERS Safety Report 20596210 (Version 2)
Quarter: 2022Q1

REPORT INFORMATION
  Report Type: Spontaneous
  Country: AR (occurrence: AR)
  Receive Date: 20220315
  Receipt Date: 20220321
  Transmission Date: 20220423
  Serious: Yes (Hospitalization)
  Sender: FDA-Public Use
  Company Number: AR-PFIZER INC-202200352235

PATIENT
  Age: 18 Year
  Sex: Female

DRUGS (1)
  1. GENOTROPIN [Suspect]
     Active Substance: SOMATROPIN
     Indication: Growth hormone deficiency
     Dosage: 1 TO 1.4 MG, 7 TIMES PER WEEK
     Dates: start: 20210415

REACTIONS (2)
  - Limb operation [Recovered/Resolved]
  - Dental discomfort [Unknown]

NARRATIVE: CASE EVENT DATE: 20211223
